FAERS Safety Report 18488916 (Version 1)
Quarter: 2020Q4

REPORT INFORMATION
  Report Type: Spontaneous
  Country: US (occurrence: US)
  Receive Date: 20201111
  Receipt Date: 20201111
  Transmission Date: 20210114
  Serious: No
  Sender: FDA-Public Use
  Company Number: US-009507513-2010USA010065

PATIENT
  Age: 31 Year
  Sex: Female
  Weight: 56.7 kg

DRUGS (2)
  1. NEXPLANON [Suspect]
     Active Substance: ETONOGESTREL
     Indication: CONTRACEPTION
     Dosage: 1 ROD EVERY THREE YEARS, IN LEFT ARM
     Route: 059
     Dates: start: 20201023, end: 20201023
  2. NEXPLANON [Suspect]
     Active Substance: ETONOGESTREL
     Indication: CONTRACEPTION
     Dosage: 1 ROD EVERY THREE YEARS
     Route: 059
     Dates: start: 20201023

REACTIONS (4)
  - Paraesthesia [Recovering/Resolving]
  - Wrong technique in device usage process [Unknown]
  - Hypoaesthesia [Recovering/Resolving]
  - Device placement issue [Unknown]

NARRATIVE: CASE EVENT DATE: 20201023
